FAERS Safety Report 14112061 (Version 5)
Quarter: 2018Q1

REPORT INFORMATION
  Report Type: Spontaneous
  Country: DE (occurrence: DE)
  Receive Date: 20171020
  Receipt Date: 20180309
  Transmission Date: 20180508
  Serious: Yes (Other)
  Sender: FDA-Public Use
  Company Number: DE-PFIZER INC-2017445250

PATIENT
  Age: 67 Year
  Sex: Male

DRUGS (12)
  1. RAMIPRIL. [Concomitant]
     Active Substance: RAMIPRIL
     Dosage: UNK
  2. LEVOTHYROXINE SODIUM. [Concomitant]
     Active Substance: LEVOTHYROXINE SODIUM
     Dosage: UNK
  3. AMIODARONE HCL [Interacting]
     Active Substance: AMIODARONE HYDROCHLORIDE
     Indication: HYPERTENSION
  4. ALLOPURINOL. [Concomitant]
     Active Substance: ALLOPURINOL
     Dosage: UNK
  5. AMIODARONE HCL [Suspect]
     Active Substance: AMIODARONE HYDROCHLORIDE
     Indication: ATRIAL FIBRILLATION
     Dosage: 200 MG, 1X/DAY
  6. HYDROCHLOROTHIAZIDE. [Concomitant]
     Active Substance: HYDROCHLOROTHIAZIDE
     Dosage: UNK
  7. SULFAMETHOXAZOLE/TRIMETHOPRIM [Concomitant]
     Dosage: UNK
  8. TORASEMIDE [Concomitant]
     Active Substance: TORSEMIDE
     Dosage: UNK
  9. IBRUTINIB [Interacting]
     Active Substance: IBRUTINIB
     Indication: MANTLE CELL LYMPHOMA
     Dosage: 560 MG, 1X/DAY
     Dates: start: 201603, end: 201610
  10. ENOXAPARIN [Concomitant]
     Active Substance: ENOXAPARIN
     Dosage: UNK
  11. PANTOPRAZOLE [Concomitant]
     Active Substance: PANTOPRAZOLE
     Dosage: UNK
  12. SIMVASTATIN. [Concomitant]
     Active Substance: SIMVASTATIN
     Dosage: UNK

REACTIONS (4)
  - Atrial fibrillation [Recovered/Resolved]
  - Cardiac failure [Recovered/Resolved]
  - Potentiating drug interaction [Recovered/Resolved]
  - Pulmonary hypertension [Recovered/Resolved]
